FAERS Safety Report 25924550 (Version 2)
Quarter: 2025Q4

REPORT INFORMATION
  Report Type: Spontaneous
  Country: US (occurrence: US)
  Receive Date: 20251015
  Receipt Date: 20251016
  Transmission Date: 20260117
  Serious: No
  Sender: NOVARTIS
  Company Number: US-002147023-NVSC2025US155793

PATIENT
  Sex: Female

DRUGS (1)
  1. MEKINIST [Suspect]
     Active Substance: TRAMETINIB DIMETHYL SULFOXIDE
     Indication: Cranial nerve neoplasm benign
     Dosage: UNK (TAKE L TABLET BY MOUTH EVERY OTHER DAY ALTERNATING WITH Z TABLETS BY MOUTH)
     Route: 048
     Dates: start: 202002

REACTIONS (2)
  - Illness [Unknown]
  - Vomiting [Unknown]
